FAERS Safety Report 23292892 (Version 1)
Quarter: 2023Q4

REPORT INFORMATION
  Report Type: Spontaneous
  Country: US (occurrence: US)
  Receive Date: 20231213
  Receipt Date: 20231213
  Transmission Date: 20240110
  Serious: No
  Sender: FDA-Public Use
  Company Number: US-BAYER-2023A177688

PATIENT
  Sex: Female

DRUGS (1)
  1. CLARITIN-D 24 HOUR [Suspect]
     Active Substance: LORATADINE\PSEUDOEPHEDRINE SULFATE
     Indication: Product used for unknown indication
     Route: 048

REACTIONS (10)
  - Pruritus [None]
  - Palpitations [None]
  - Nervousness [None]
  - Restlessness [None]
  - Insomnia [None]
  - Fatigue [None]
  - Dizziness [None]
  - Chest discomfort [None]
  - Dyspnoea [None]
  - Feeling abnormal [None]
